FAERS Safety Report 23821279 (Version 2)
Quarter: 2024Q2

REPORT INFORMATION
  Report Type: Spontaneous
  Country: US (occurrence: US)
  Receive Date: 20240506
  Receipt Date: 20240624
  Transmission Date: 20240715
  Serious: No
  Sender: FDA-Public Use
  Company Number: US-BRISTOL-MYERS SQUIBB COMPANY-2024-069869

PATIENT
  Age: 63 Year
  Sex: Male

DRUGS (1)
  1. ZEPOSIA [Suspect]
     Active Substance: OZANIMOD HYDROCHLORIDE
     Indication: Colitis ulcerative
     Route: 048
     Dates: start: 202211

REACTIONS (6)
  - Neck pain [Recovering/Resolving]
  - Hypoaesthesia [Recovering/Resolving]
  - Dyspnoea [Unknown]
  - Fatigue [Unknown]
  - Eye disorder [Unknown]
  - Musculoskeletal stiffness [Unknown]
